FAERS Safety Report 4627154-6 (Version None)
Quarter: 2005Q2

REPORT INFORMATION
  Report Type: 
  Country: None (occurrence: None)
  Receive Date: 20050405
  Receipt Date: 20050311
  Transmission Date: 20051028
  Serious: Yes (Hospitalization, Other)
  Sender: FDA-Public Use
  Company Number: 2005JP000477

PATIENT
  Age: 73 Year
  Sex: Male
  Weight: 50.7 kg

DRUGS (2)
  1. CEFAMEZIN [Suspect]
     Indication: SYNOVITIS
     Dosage: 1G TWICE PER DAY
     Route: 042
     Dates: start: 20050216, end: 20050218
  2. TEICOPLANIN [Suspect]
     Indication: STAPHYLOCOCCAL INFECTION
     Dosage: 400MG VARIABLE DOSE
     Route: 042
     Dates: start: 20050219, end: 20050221

REACTIONS (2)
  - PLATELET COUNT DECREASED [None]
  - STAPHYLOCOCCAL INFECTION [None]
